FAERS Safety Report 16814384 (Version 1)
Quarter: 2019Q3

REPORT INFORMATION
  Report Type: Spontaneous
  Country: US (occurrence: US)
  Receive Date: 20190917
  Receipt Date: 20190917
  Transmission Date: 20191005
  Serious: No
  Sender: FDA-Public Use
  Company Number: US-ALLERGAN-1903738US

PATIENT
  Age: 90 Year
  Sex: Female

DRUGS (3)
  1. LINZESS [Suspect]
     Active Substance: LINACLOTIDE
     Indication: CONSTIPATION
     Dosage: 290 ?G, UNK
     Route: 065
  2. BLOOD THINNER [Concomitant]
     Active Substance: UNSPECIFIED INGREDIENT
  3. THYROID PILL [Concomitant]

REACTIONS (2)
  - Drug ineffective [Unknown]
  - Product quality issue [Unknown]

NARRATIVE: CASE EVENT DATE: 20190110
